FAERS Safety Report 6381678-2 (Version None)
Quarter: 2009Q3

REPORT INFORMATION
  Report Type: 
  Country: None (occurrence: None)
  Receive Date: 20090930
  Receipt Date: 20090917
  Transmission Date: 20100115
  Serious: Yes (Other)
  Sender: FDA-Public Use
  Company Number: PHHY2009JP37556

PATIENT
  Age: 42 Year
  Sex: Male

DRUGS (2)
  1. DIOVAN [Suspect]
     Indication: HYPERTENSION
     Route: 048
  2. NORVASC [Concomitant]

REACTIONS (3)
  - BLOOD AMYLASE ABNORMAL [None]
  - LIPASE ABNORMAL [None]
  - PANCREATITIS CHRONIC [None]
